FAERS Safety Report 13800525 (Version 1)
Quarter: 2017Q3

REPORT INFORMATION
  Report Type: Report from Study
  Country: None (occurrence: RO)
  Receive Date: 20170727
  Receipt Date: 20170727
  Transmission Date: 20171127
  Serious: Yes (Hospitalization, Other)
  Sender: FDA-Public Use
  Company Number: RO-ABBVIE-17K-135-2050093-00

PATIENT
  Age: 80 Year
  Sex: Male

DRUGS (2)
  1. ISIOM [Concomitant]
     Indication: PARKINSON^S DISEASE
     Route: 048
     Dates: start: 20170724
  2. DUODOPA [Suspect]
     Active Substance: CARBIDOPA\LEVODOPA
     Indication: PARKINSON^S DISEASE
     Dosage: MD-13ML??CR-4.7ML/H??ED-2ML
     Route: 050
     Dates: start: 20140730, end: 20170720

REACTIONS (12)
  - Cachexia [Recovering/Resolving]
  - Ischaemic cardiomyopathy [Not Recovered/Not Resolved]
  - Headache [Recovering/Resolving]
  - Dysphagia [Recovering/Resolving]
  - Dehydration [Recovering/Resolving]
  - Lacunar infarction [Not Recovered/Not Resolved]
  - Ischaemic neuropathy [Recovering/Resolving]
  - Muscle spasms [Recovering/Resolving]
  - Psychomotor hyperactivity [Recovering/Resolving]
  - Folate deficiency [Not Recovered/Not Resolved]
  - Dysphonia [Recovering/Resolving]
  - Normochromic anaemia [Not Recovered/Not Resolved]

NARRATIVE: CASE EVENT DATE: 201611
